FAERS Safety Report 5302376-X (Version None)
Quarter: 2007Q2

REPORT INFORMATION
  Report Type: 
  Country: None (occurrence: None)
  Receive Date: 20070419
  Receipt Date: 20070412
  Transmission Date: 20071010
  Serious: Yes (Death, Hospitalization)
  Sender: FDA-Public Use
  Company Number: US-BAXTER-2007BH003236

PATIENT
  Age: 52 Year
  Sex: Male

DRUGS (2)
  1. DIANEAL [Suspect]
     Indication: RENAL FAILURE CHRONIC
     Route: 033
     Dates: start: 19960401, end: 20070326
  2. DIANEAL [Suspect]
     Indication: PERITONEAL DIALYSIS
     Dosage: DOSE UNIT:UNKNOWN
     Route: 033
     Dates: start: 19960401, end: 20070326

REACTIONS (4)
  - CACHEXIA [None]
  - CARDIOMYOPATHY [None]
  - FAILURE TO THRIVE [None]
  - ULCER [None]
